FAERS Safety Report 12950646 (Version 1)
Quarter: 2016Q4

REPORT INFORMATION
  Report Type: Other
  Country: DE (occurrence: DE)
  Receive Date: 20161116
  Receipt Date: 20161116
  Transmission Date: 20170207
  Serious: Yes (Other)
  Sender: FDA-Public Use
  Company Number: DE-ENDO PHARMACEUTICALS INC-2016-006848

PATIENT
  Sex: Male

DRUGS (2)
  1. NORETHISTERONE ENANTATE [Suspect]
     Active Substance: NORETHINDRONE ENANTHATE
     Indication: CHEMICAL CONTRACEPTION
     Route: 030
  2. AVEED [Suspect]
     Active Substance: TESTOSTERONE UNDECANOATE
     Indication: CHEMICAL CONTRACEPTION
     Route: 030

REACTIONS (2)
  - Tachycardia [Unknown]
  - Atrial fibrillation [Unknown]
